FAERS Safety Report 21832028 (Version 5)
Quarter: 2024Q1

REPORT INFORMATION
  Report Type: Spontaneous
  Country: GB (occurrence: GB)
  Receive Date: 20230106
  Receipt Date: 20240110
  Transmission Date: 20240410
  Serious: Yes (Hospitalization, Other)
  Sender: FDA-Public Use
  Company Number: GB-MYLANLABS-2022M1145911

PATIENT
  Age: 61 Year
  Sex: Female

DRUGS (1)
  1. CLOZARIL [Suspect]
     Active Substance: CLOZAPINE
     Indication: Schizophrenia
     Dosage: 675 MILLIGRAM, QD (225MG MANE, 450MG NOCTE)
     Route: 048
     Dates: start: 20210929, end: 202401

REACTIONS (10)
  - Malaise [Unknown]
  - Neutrophilia [Recovering/Resolving]
  - Seizure [Unknown]
  - Chronic obstructive pulmonary disease [Unknown]
  - Leukocytosis [Not Recovered/Not Resolved]
  - Sedation [Unknown]
  - Constipation [Unknown]
  - Salivary hypersecretion [Unknown]
  - Platelet count increased [Unknown]
  - Therapy interrupted [Unknown]

NARRATIVE: CASE EVENT DATE: 20221221
